FAERS Safety Report 17850327 (Version 3)
Quarter: 2020Q2

REPORT INFORMATION
  Report Type: Spontaneous
  Country: AU (occurrence: AU)
  Receive Date: 20200602
  Receipt Date: 20200616
  Transmission Date: 20200714
  Serious: Yes (Hospitalization)
  Sender: FDA-Public Use
  Company Number: AU-MYLANLABS-2020M1053450

PATIENT
  Sex: Male

DRUGS (2)
  1. CLOZARIL [Suspect]
     Active Substance: CLOZAPINE
     Indication: SCHIZOPHRENIA
     Dosage: 150 MILLIGRAM
     Route: 048
     Dates: start: 20180219, end: 20200521
  2. CLOZARIL [Suspect]
     Active Substance: CLOZAPINE
     Dosage: RAPID RE-TITRATION WITH GOAL TO GET BACK TO 550MG DAILY
     Dates: start: 20200526

REACTIONS (2)
  - Treatment noncompliance [Unknown]
  - Schizophrenia [Unknown]
